FAERS Safety Report 11138070 (Version 1)
Quarter: 2015Q2

REPORT INFORMATION
  Report Type: Spontaneous
  Country: US (occurrence: US)
  Receive Date: 20150526
  Receipt Date: 20150526
  Transmission Date: 20150821
  Serious: No
  Sender: FDA-Public Use
  Company Number: US-GLAXOSMITHKLINE-US2015GSK071835

PATIENT
  Sex: Female
  Weight: 58.96 kg

DRUGS (1)
  1. MEKINIST [Suspect]
     Active Substance: TRAMETINIB DIMETHYL SULFOXIDE
     Indication: NEUROENDOCRINE CARCINOMA
     Dosage: 2 MG, QD
     Route: 048
     Dates: start: 20140905

REACTIONS (1)
  - Drug ineffective [Unknown]
